FAERS Safety Report 5642913-9 (Version None)
Quarter: 2008Q1

REPORT INFORMATION
  Report Type: 
  Country: None (occurrence: None)
  Receive Date: 20080228
  Receipt Date: 20080220
  Transmission Date: 20080703
  Serious: Yes (Other)
  Sender: FDA-Public Use
  Company Number: US-ROCHE-548405

PATIENT
  Age: 15 Year
  Sex: Female
  Weight: 56.7 kg

DRUGS (5)
  1. TAMIFLU [Suspect]
     Route: 048
     Dates: start: 20080219
  2. ZOLOFT [Concomitant]
  3. SEROQUEL [Concomitant]
  4. LAMICTAL [Concomitant]
  5. IBUPROFEN [Concomitant]

REACTIONS (1)
  - INTENTIONAL SELF-INJURY [None]
